FAERS Safety Report 10414081 (Version 1)
Quarter: 2014Q3

REPORT INFORMATION
  Report Type: Spontaneous
  Country: GB (occurrence: None)
  Receive Date: 20140826
  Receipt Date: 20140826
  Transmission Date: 20150326
  Serious: Yes (Other)
  Sender: FDA-Public Use
  Company Number: AUR-APL-2014-08909

PATIENT
  Sex: Female

DRUGS (3)
  1. SINEMET [Suspect]
     Active Substance: CARBIDOPA\LEVODOPA
     Indication: PRODUCT USED FOR UNKNOWN INDICATION
  2. QUETIAPINE (QUETIAPINE) UNKNOWN, UNKNOWN [Suspect]
     Active Substance: QUETIAPINE
     Indication: PRODUCT USED FOR UNKNOWN INDICATION
  3. COMTESS (ENTACAPONE) [Suspect]
     Active Substance: ENTACAPONE
     Indication: PARKINSON^S DISEASE

REACTIONS (15)
  - Disturbance in attention [None]
  - Defaecation urgency [None]
  - Back pain [None]
  - Benign neoplasm of adrenal gland [None]
  - Head discomfort [None]
  - Somnolence [None]
  - Abdominal pain [None]
  - Speech disorder [None]
  - Tremor [None]
  - Malaise [None]
  - Agitation [None]
  - Muscle twitching [None]
  - Uterine prolapse [None]
  - Dyskinesia [None]
  - Myalgia [None]
